FAERS Safety Report 20086796 (Version 3)
Quarter: 2022Q1

REPORT INFORMATION
  Report Type: Report from Study
  Country: DE (occurrence: None)
  Receive Date: 20211118
  Receipt Date: 20220218
  Transmission Date: 20220423
  Serious: Yes (Hospitalization)
  Sender: FDA-Public Use
  Company Number: DE-ROCHE-2954439

PATIENT
  Age: 41 Year
  Sex: Female
  Weight: 58 kg

DRUGS (5)
  1. ATEZOLIZUMAB [Suspect]
     Active Substance: ATEZOLIZUMAB
     Indication: Triple negative breast cancer
     Route: 041
     Dates: start: 20211015
  2. ESCITALOPRAM [Concomitant]
     Active Substance: ESCITALOPRAM OXALATE
     Dates: start: 20210826
  3. DOMINAL (GERMANY) [Concomitant]
     Dates: start: 20210826
  4. COMIRNATY [Concomitant]
     Active Substance: TOZINAMERAN
     Dates: start: 20210122, end: 20210122
  5. COMIRNATY [Concomitant]
     Active Substance: TOZINAMERAN
     Dates: start: 20210212, end: 20210212

REACTIONS (1)
  - Pyrexia [Recovered/Resolved]

NARRATIVE: CASE EVENT DATE: 20211026
